FAERS Safety Report 9705764 (Version 2)
Quarter: 2015Q3

REPORT INFORMATION
  Report Type: Spontaneous
  Country: US (occurrence: US)
  Receive Date: 20131122
  Receipt Date: 20150803
  Transmission Date: 20151125
  Serious: No
  Sender: FDA-Public Use
  Company Number: US-GILEAD-2008-0017967

PATIENT
  Age: 92 Year
  Weight: 79.38 kg

DRUGS (10)
  1. ZOCOR [Concomitant]
     Active Substance: SIMVASTATIN
     Dosage: AS DIRECTED
     Route: 048
  2. BENICAR [Concomitant]
     Active Substance: OLMESARTAN MEDOXOMIL
     Dosage: AS DIRECTED
     Route: 048
  3. BUMEX [Concomitant]
     Active Substance: BUMETANIDE
     Dosage: AS DIRECTED
     Route: 048
  4. MULTIVITAMIN [Concomitant]
     Active Substance: VITAMINS
     Route: 048
  5. POTASSIUM CHLORIDE. [Concomitant]
     Active Substance: POTASSIUM CHLORIDE
     Dosage: AS DIRECTED
     Route: 048
  6. COREG [Concomitant]
     Active Substance: CARVEDILOL
     Dosage: AS DIRECTED
     Route: 048
  7. VITAMIN C [Concomitant]
     Active Substance: ASCORBIC ACID
     Route: 048
  8. LETAIRIS [Suspect]
     Active Substance: AMBRISENTAN
     Indication: PULMONARY ARTERIAL HYPERTENSION
     Route: 048
     Dates: start: 20080815
  9. TRAVATAN [Concomitant]
     Active Substance: TRAVOPROST
     Dosage: AS DIRECTED
     Route: 047
  10. CARTIA XT [Concomitant]
     Active Substance: DILTIAZEM HYDROCHLORIDE
     Dosage: AS DIRECTED
     Route: 048

REACTIONS (5)
  - Nausea [None]
  - Heart rate increased [None]
  - Erythema [None]
  - Peripheral swelling [None]
  - Gait disturbance [None]
